FAERS Safety Report 7180287-5 (Version None)
Quarter: 2010Q4

REPORT INFORMATION
  Report Type: 
  Country: None (occurrence: None)
  Receive Date: 20101123
  Receipt Date: 20100826
  Transmission Date: 20110411
  Serious: No
  Sender: FDA-Public Use
  Company Number: 017941

PATIENT
  Sex: Female
  Weight: 46.9 kg

DRUGS (22)
  1. CIMZIA [Suspect]
     Indication: RHEUMATOID ARTHRITIS
     Dosage: (200 MG 1X/2 WEEKS SUBCUTANEOUS)
     Route: 058
     Dates: start: 20100511
  2. IBUPROFEN [Concomitant]
  3. ALBUTEROL SULFATE [Concomitant]
  4. SYMBICORT [Concomitant]
  5. FLEXERIL [Concomitant]
  6. CRESTOR [Concomitant]
  7. BUMEX [Concomitant]
  8. POTASSIUM [Concomitant]
  9. AZOR [Concomitant]
  10. METFORIN [Concomitant]
  11. HUMULIN /00806401/ [Concomitant]
  12. NOVOLOG [Concomitant]
  13. PLAVIX [Concomitant]
  14. ASPIRIN [Concomitant]
  15. NITROGLYCERIN [Concomitant]
  16. GEN-NITRO [Concomitant]
  17. VICODIN [Concomitant]
  18. PROTONIX [Concomitant]
  19. PREGLANDNI [Concomitant]
  20. REQUIP [Concomitant]
  21. LYRICA [Concomitant]
  22. DOCUSATE SODIUM [Concomitant]

REACTIONS (3)
  - HAEMORRHAGE [None]
  - PRURITUS GENITAL [None]
  - RASH [None]
